FAERS Safety Report 10234043 (Version 1)
Quarter: 2014Q2

REPORT INFORMATION
  Report Type: Spontaneous
  Country: US (occurrence: US)
  Receive Date: 20140612
  Receipt Date: 20140612
  Transmission Date: 20141212
  Serious: No
  Sender: FDA-Public Use
  Company Number: US-TEVA-487287USA

PATIENT
  Sex: Female

DRUGS (1)
  1. AZILECT [Suspect]

REACTIONS (6)
  - Arthropathy [Unknown]
  - Asthenia [Unknown]
  - Tremor [Unknown]
  - Gait disturbance [Unknown]
  - Depression [Unknown]
  - Fatigue [Unknown]
